FAERS Safety Report 6112829-2 (Version None)
Quarter: 2009Q1

REPORT INFORMATION
  Report Type: 
  Country: None (occurrence: None)
  Receive Date: 20090312
  Receipt Date: 20090227
  Transmission Date: 20090719
  Serious: Yes (Other)
  Sender: FDA-Public Use
  Company Number: US-PFIZER INC-2009180845

PATIENT
  Sex: Female
  Weight: 62.585 kg

DRUGS (3)
  1. FLUCONAZOLE [Suspect]
     Dosage: UNK
     Dates: start: 20090216, end: 20090201
  2. LEXAPRO [Concomitant]
     Dosage: UNK
  3. CIPROFLOXACIN [Concomitant]
     Dosage: UNK

REACTIONS (5)
  - ANXIETY [None]
  - CONFUSIONAL STATE [None]
  - NEGATIVE THOUGHTS [None]
  - PANIC ATTACK [None]
  - SUICIDAL IDEATION [None]
